FAERS Safety Report 4272840-3 (Version None)
Quarter: 2004Q1

REPORT INFORMATION
  Report Type: 
  Country: None (occurrence: None)
  Receive Date: 20040114
  Receipt Date: 20040102
  Transmission Date: 20041129
  Serious: Yes (Other)
  Sender: FDA-Public Use
  Company Number: 2003117887

PATIENT
  Age: 28 Year
  Sex: Female

DRUGS (4)
  1. DILANTIN [Suspect]
     Indication: CONVULSION
     Dosage: 225 MG (TID), ORAL
     Route: 048
     Dates: start: 20010101
  2. CARBAMAZEPINE [Suspect]
     Indication: ILL-DEFINED DISORDER
     Dosage: 600 MG (TID), ORAL
     Route: 048
  3. FOLIC ACID [Concomitant]
  4. LANSOPRAZOLE [Concomitant]

REACTIONS (6)
  - COELIAC DISEASE [None]
  - DRUG LEVEL BELOW THERAPEUTIC [None]
  - DRUG LEVEL DECREASED [None]
  - GRAND MAL CONVULSION [None]
  - NASOPHARYNGITIS [None]
  - WEIGHT DECREASED [None]
